FAERS Safety Report 12882171 (Version 1)
Quarter: 2016Q4

REPORT INFORMATION
  Report Type: Spontaneous
  Country: ES (occurrence: ES)
  Receive Date: 20161025
  Receipt Date: 20161025
  Transmission Date: 20170207
  Serious: Yes (Other)
  Sender: FDA-Public Use
  Company Number: ES-PFIZER INC-2016493005

PATIENT
  Age: 66 Year
  Sex: Male
  Weight: 50 kg

DRUGS (8)
  1. BRILIQUE [Suspect]
     Active Substance: TICAGRELOR
     Indication: ACUTE MYOCARDIAL INFARCTION
     Dosage: 90 MG TWICE DAILY
     Route: 048
     Dates: start: 20150512
  2. CLORAZEPATO NORMON [Suspect]
     Active Substance: CLORAZEPATE DIPOTASSIUM
     Indication: INSOMNIA
     Dosage: 5 MG DAILY
     Route: 048
     Dates: start: 20150512
  3. OMEPRAZOL STADA [Suspect]
     Active Substance: OMEPRAZOLE
     Indication: GASTRITIS PROPHYLAXIS
     Dosage: 20 MG ONCE A DAY
     Route: 048
     Dates: start: 20150512
  4. COROPRES /00984501/ [Suspect]
     Active Substance: CARVEDILOL
     Indication: ACUTE MYOCARDIAL INFARCTION
     Dosage: 12.5 MG TWICE DAILY
     Route: 048
     Dates: start: 20150512
  5. EPLERENONE. [Suspect]
     Active Substance: EPLERENONE
     Indication: ACUTE MYOCARDIAL INFARCTION
     Dosage: 25 MG DAILY
     Route: 048
     Dates: start: 20150512
  6. TAMSULOSIN [Suspect]
     Active Substance: TAMSULOSIN
     Indication: BENIGN PROSTATIC HYPERPLASIA
     Dosage: 0.4 MG DAILY
     Route: 048
     Dates: start: 20150512
  7. ACIDO ACETILSALICILICO STADA [Suspect]
     Active Substance: ASPIRIN
     Indication: MYOCARDIAL ISCHAEMIA
     Dosage: 100 MG DAILY
     Route: 048
     Dates: start: 20150512
  8. ATORVASTATIN STADA [Suspect]
     Active Substance: ATORVASTATIN
     Indication: ACUTE MYOCARDIAL INFARCTION
     Dosage: 80 MG DAILY
     Route: 048
     Dates: start: 20150512

REACTIONS (2)
  - Condition aggravated [Not Recovered/Not Resolved]
  - Benign prostatic hyperplasia [Not Recovered/Not Resolved]

NARRATIVE: CASE EVENT DATE: 20150917
